FAERS Safety Report 25515263 (Version 2)
Quarter: 2025Q3

REPORT INFORMATION
  Report Type: Spontaneous
  Country: JP (occurrence: JP)
  Receive Date: 20250704
  Receipt Date: 20250708
  Transmission Date: 20251020
  Serious: No
  Sender: GILEAD
  Company Number: JP-GILEAD-2025-0718186

PATIENT
  Age: 54 Year
  Sex: Male

DRUGS (1)
  1. BIKTARVY [Suspect]
     Active Substance: BICTEGRAVIR SODIUM\EMTRICITABINE\TENOFOVIR ALAFENAMIDE FUMARATE
     Indication: HIV infection
     Dosage: QD
     Route: 048

REACTIONS (1)
  - Dysphagia [Unknown]
